FAERS Safety Report 8429738-6 (Version None)
Quarter: 2012Q2

REPORT INFORMATION
  Report Type: 
  Country: None (occurrence: None)
  Receive Date: 20120612
  Receipt Date: 20120608
  Transmission Date: 20120825
  Serious: Yes (Hospitalization, Other)
  Sender: FDA-Public Use
  Company Number: US-PFIZER INC-2012138682

PATIENT
  Sex: Male
  Weight: 111 kg

DRUGS (7)
  1. DICLOFENAC [Concomitant]
     Dosage: UNK, 3X/DAY
  2. SENOKOT [Concomitant]
     Dosage: UNK
  3. LYRICA [Suspect]
     Indication: TRIGEMINAL NEURALGIA
     Dosage: 200 MG, 3X/DAY
     Route: 048
     Dates: start: 20110929
  4. NORVASC [Concomitant]
     Indication: HYPERTENSION
     Dosage: UNK
  5. PAMELOR [Concomitant]
     Dosage: UNK, 1X/DAY
  6. TAMSULOSIN [Concomitant]
     Dosage: 0.4 MG, UNK
  7. FENTANYL [Concomitant]
     Dosage: UNK, ONCE IN THREE DAYS

REACTIONS (1)
  - PNEUMONIA [None]
